FAERS Safety Report 6235264-5 (Version None)
Quarter: 2009Q2

REPORT INFORMATION
  Report Type: 
  Country: None (occurrence: None)
  Receive Date: 20090618
  Receipt Date: 20090615
  Transmission Date: 20091009
  Serious: Yes (Hospitalization)
  Sender: FDA-Public Use
  Company Number: DE-WYE-G03845409

PATIENT
  Age: 53 Year
  Sex: Female

DRUGS (12)
  1. VENLAFAXINE HCL [Interacting]
     Indication: DEPRESSION
     Route: 048
     Dates: start: 20081123, end: 20081222
  2. VENLAFAXINE HCL [Interacting]
     Route: 048
     Dates: start: 20081223, end: 20090123
  3. VENLAFAXINE HCL [Interacting]
     Route: 048
     Dates: start: 20090124, end: 20090209
  4. VENLAFAXINE HCL [Interacting]
     Route: 048
     Dates: start: 20090210
  5. FEMARA [Concomitant]
     Route: 048
     Dates: start: 20070101
  6. GABAPENTIN [Concomitant]
     Route: 048
     Dates: start: 20080101
  7. PANTOZOL [Concomitant]
     Route: 048
     Dates: start: 20070101
  8. DIPIPERON [Suspect]
     Route: 048
     Dates: start: 20081120, end: 20081121
  9. DIPIPERON [Suspect]
     Route: 048
     Dates: start: 20081122, end: 20081229
  10. DIPIPERON [Suspect]
     Route: 048
     Dates: start: 20081230, end: 20090116
  11. DIPIPERON [Suspect]
     Route: 048
     Dates: start: 20090117, end: 20090123
  12. FENTANYL [Interacting]
     Dosage: 1 PATCH CONTAINING 75 MG EVERY 2 WEEKS
     Route: 058
     Dates: start: 20070101

REACTIONS (3)
  - DRUG INTERACTION [None]
  - URINARY INCONTINENCE [None]
  - URINARY RETENTION [None]
